FAERS Safety Report 6679364-4 (Version None)
Quarter: 2010Q2

REPORT INFORMATION
  Report Type: 
  Country: None (occurrence: None)
  Receive Date: 20100408
  Receipt Date: 20090706
  Transmission Date: 20101027
  Serious: No
  Sender: FDA-Public Use
  Company Number: 2009-00540

PATIENT
  Age: 74 Year
  Sex: Female
  Weight: 49.8957 kg

DRUGS (3)
  1. ZICAM COLD REMEDY GEL SWABS [Suspect]
     Dosage: QID 7 DAYS, ABOUT A YEAR AGO
  2. ZICAM COLD REMEDY NASAL GEL [Suspect]
     Dosage: QID 7 DAYS, ABOUT A YEAR AGO
  3. LEVOTHYROXINE SODIUM [Concomitant]

REACTIONS (2)
  - AGEUSIA [None]
  - ANOSMIA [None]
